FAERS Safety Report 23615420 (Version 1)
Quarter: 2024Q1

REPORT INFORMATION
  Report Type: Report from Study
  Country: US (occurrence: US)
  Receive Date: 20240311
  Receipt Date: 20240311
  Transmission Date: 20240410
  Serious: No
  Sender: FDA-Public Use
  Company Number: US-AstraZeneca-CH-00579578A

PATIENT
  Sex: Female

DRUGS (1)
  1. SOLIRIS [Suspect]
     Active Substance: ECULIZUMAB
     Indication: Myasthenia gravis
     Dosage: UNK
     Route: 042

REACTIONS (4)
  - Pruritus [Unknown]
  - Incision site rash [Not Recovered/Not Resolved]
  - Scar [Unknown]
  - Device issue [Unknown]

NARRATIVE: CASE EVENT DATE: 20240201
